FAERS Safety Report 4768636-6 (Version None)
Quarter: 2005Q3

REPORT INFORMATION
  Report Type: 
  Country: None (occurrence: None)
  Receive Date: 20050914
  Receipt Date: 20050901
  Transmission Date: 20060218
  Serious: Yes (Other)
  Sender: FDA-Public Use
  Company Number: US-AMGEN-US147535

PATIENT
  Sex: Male

DRUGS (4)
  1. ARANESP [Suspect]
     Indication: ANAEMIA OF MALIGNANT DISEASE
     Dates: start: 20030101, end: 20050801
  2. FLUDARABINE PHOSPHATE [Concomitant]
  3. CYTOXAN [Concomitant]
  4. DIFLUCAN [Concomitant]

REACTIONS (2)
  - HAEMOGLOBIN DECREASED [None]
  - RETICULOCYTOPENIA [None]
